FAERS Safety Report 4358794-X (Version None)
Quarter: 2004Q2

REPORT INFORMATION
  Report Type: 
  Country: None (occurrence: None)
  Receive Date: 20040511
  Receipt Date: 20040426
  Transmission Date: 20050107
  Serious: Yes (Hospitalization)
  Sender: FDA-Public Use
  Company Number: 191010

PATIENT
  Age: 41 Year
  Sex: Female
  Weight: 117.9352 kg

DRUGS (2)
  1. AVONEX [Suspect]
     Indication: MULTIPLE SCLEROSIS
     Dosage: 30 MCG QW IM
     Dates: start: 20030701, end: 20030822
  2. AVONEX [Suspect]
     Indication: MULTIPLE SCLEROSIS
     Dosage: 30 MCG QW IM
     Dates: start: 20030829

REACTIONS (7)
  - ARTHRALGIA [None]
  - CHEST PAIN [None]
  - GASTROINTESTINAL INFECTION [None]
  - INFLAMMATION [None]
  - INSOMNIA [None]
  - SYNOVIAL CYST [None]
  - VIRAL INFECTION [None]
